FAERS Safety Report 7893255-2 (Version None)
Quarter: 2011Q4

REPORT INFORMATION
  Report Type: 
  Country: None (occurrence: None)
  Receive Date: 20111104
  Receipt Date: 20111102
  Transmission Date: 20120403
  Serious: Yes (Death)
  Sender: FDA-Public Use
  Company Number: PHHY2011HU96923

PATIENT
  Age: 77 Year
  Sex: Male

DRUGS (4)
  1. ANTIBIOTICS [Concomitant]
  2. ALBUTEROL SULFATE AUTOHALER [Concomitant]
     Dosage: AS NEEDED
  3. INDACATEROL [Suspect]
     Indication: CHRONIC OBSTRUCTIVE PULMONARY DISEASE
     Dosage: 150 UG, QD
     Dates: start: 20110224, end: 20110310
  4. THEOPHYLLINE [Concomitant]
     Dosage: UNK
     Dates: start: 20110211

REACTIONS (1)
  - DEATH [None]
